FAERS Safety Report 20654972 (Version 1)
Quarter: 2022Q1

REPORT INFORMATION
  Report Type: Spontaneous
  Country: CN (occurrence: CN)
  Receive Date: 20220330
  Receipt Date: 20220330
  Transmission Date: 20220423
  Serious: Yes (Hospitalization)
  Sender: FDA-Public Use
  Company Number: CN-PFIZER INC-202200452025

PATIENT
  Age: 73 Year
  Sex: Female
  Weight: 35 kg

DRUGS (3)
  1. ATORVASTATIN CALCIUM [Suspect]
     Active Substance: ATORVASTATIN CALCIUM
     Indication: Cerebral infarction
     Dosage: 20 MG, 1X/DAY
     Route: 048
     Dates: start: 20210317, end: 20220317
  2. NICERGOLINE [Suspect]
     Active Substance: NICERGOLINE
     Indication: Cerebral infarction
     Dosage: 10 MG, 1X/DAY
     Route: 048
     Dates: start: 20220306, end: 20220317
  3. ASPIRIN [Suspect]
     Active Substance: ASPIRIN
     Indication: Cerebral infarction
     Dosage: 100 MG, 1X/DAY
     Route: 048
     Dates: start: 20210317, end: 20220317

REACTIONS (2)
  - Platelet count decreased [Not Recovered/Not Resolved]
  - Condition aggravated [Not Recovered/Not Resolved]

NARRATIVE: CASE EVENT DATE: 20220317
